FAERS Safety Report 6368256-6 (Version None)
Quarter: 2009Q3

REPORT INFORMATION
  Report Type: 
  Country: None (occurrence: None)
  Receive Date: 20090922
  Receipt Date: 20090914
  Transmission Date: 20100115
  Serious: Yes (Hospitalization)
  Sender: FDA-Public Use
  Company Number: JP-BRISTOL-MYERS SQUIBB COMPANY-14786495

PATIENT
  Age: 71 Year
  Sex: Female
  Weight: 47 kg

DRUGS (5)
  1. ERBITUX [Suspect]
     Indication: RECTAL CANCER
     Dosage: 13MAR09:330MG 8TH INF:24JUN09 RESUMED ON 03JUL09
     Route: 042
     Dates: start: 20090428, end: 20090428
  2. IRINOTECAN HCL [Suspect]
     Indication: RECTAL CANCER
     Dosage: 5TH INF:24JUN09 RESUMED ON 09JUL09
     Route: 042
     Dates: start: 20090428
  3. CHLOR-TRIMETON [Concomitant]
     Indication: PREMEDICATION
     Route: 042
     Dates: start: 20090428
  4. DEXART [Concomitant]
     Indication: ANTIEMETIC SUPPORTIVE CARE
     Route: 042
     Dates: start: 20090428
  5. KYTRIL [Concomitant]
     Indication: ANTIEMETIC SUPPORTIVE CARE
     Route: 042
     Dates: start: 20090428

REACTIONS (1)
  - SUBILEUS [None]
